FAERS Safety Report 20841018 (Version 1)
Quarter: 2022Q2

REPORT INFORMATION
  Report Type: Spontaneous
  Country: US (occurrence: US)
  Receive Date: 20220517
  Receipt Date: 20220517
  Transmission Date: 20220720
  Serious: No
  Sender: FDA-Public Use
  Company Number: US-PFIZER INC-202101720998

PATIENT
  Sex: Female

DRUGS (3)
  1. SOLU-CORTEF [Suspect]
     Active Substance: HYDROCORTISONE SODIUM SUCCINATE
     Indication: Adrenal insufficiency
     Dosage: SHE USED 1/2 OF THE VIAL YESTERDAY MORNING AND THE OTHER 1/2 THIS MORNING
  2. TYMLOS [Suspect]
     Active Substance: ABALOPARATIDE
     Indication: Osteoporosis
     Dosage: UNK
     Route: 058
  3. HYDROCORTISONE [Concomitant]
     Active Substance: HYDROCORTISONE
     Indication: Adrenal insufficiency
     Dosage: UNK

REACTIONS (3)
  - Injection site pain [Unknown]
  - Multiple use of single-use product [Unknown]
  - Expired product administered [Unknown]
